FAERS Safety Report 5527996-9 (Version None)
Quarter: 2007Q4

REPORT INFORMATION
  Report Type: 
  Country: None (occurrence: None)
  Receive Date: 20071128
  Receipt Date: 20071121
  Transmission Date: 20080405
  Serious: Yes (Other)
  Sender: FDA-Public Use
  Company Number: DE-ASTRAZENECA-2007AC02283

PATIENT
  Age: 75 Year
  Sex: Male

DRUGS (1)
  1. ESOMEPRAZOLE [Suspect]

REACTIONS (1)
  - RHABDOMYOLYSIS [None]
